FAERS Safety Report 5287719-8 (Version None)
Quarter: 2007Q1

REPORT INFORMATION
  Report Type: 
  Country: None (occurrence: None)
  Receive Date: 20070116
  Receipt Date: 20060917
  Transmission Date: 20070707
  Serious: No
  Sender: FDA-Public Use
  Company Number: 2006SP003318

PATIENT
  Age: 42 Year
  Sex: Male
  Weight: 95.2554 kg

DRUGS (6)
  1. LUNESTA [Suspect]
     Indication: SLEEP DISORDER
     Dosage: 2 MG; HS; ORAL
     Route: 048
     Dates: start: 20060903, end: 20060904
  2. ATIVAN [Concomitant]
  3. ALLEGRA [Concomitant]
  4. VYTORIN [Concomitant]
  5. PREVACID [Concomitant]
  6. PAXIL [Concomitant]

REACTIONS (2)
  - DRUG INEFFECTIVE [None]
  - INSOMNIA [None]
